FAERS Safety Report 25795999 (Version 2)
Quarter: 2025Q3

REPORT INFORMATION
  Report Type: Spontaneous
  Country: CA (occurrence: CA)
  Receive Date: 20250912
  Receipt Date: 20250919
  Transmission Date: 20251021
  Serious: Yes (Other)
  Sender: PFIZER
  Company Number: CA-PFIZER INC-202500179990

PATIENT
  Age: 59 Year
  Sex: Female

DRUGS (6)
  1. IXIFI [Suspect]
     Active Substance: INFLIXIMAB-QBTX
     Indication: Rheumatoid arthritis
     Route: 042
     Dates: start: 20250605
  2. IXIFI [Suspect]
     Active Substance: INFLIXIMAB-QBTX
     Route: 042
     Dates: start: 20250814
  3. ERELZI [Concomitant]
     Active Substance: ETANERCEPT-SZZS
  4. FOLIC ACID [Concomitant]
     Active Substance: FOLIC ACID
  5. HYDROXYCHLOROQUINE [Concomitant]
     Active Substance: HYDROXYCHLOROQUINE
     Dosage: 400 MG, 1X/DAY
     Route: 048
  6. METHOTREXATE [Concomitant]
     Active Substance: METHOTREXATE
     Dosage: 15 MG, 1X/DAY
     Route: 058

REACTIONS (1)
  - Haematochezia [Unknown]
